FAERS Safety Report 4710893-6 (Version None)
Quarter: 2005Q3

REPORT INFORMATION
  Report Type: 
  Country: None (occurrence: None)
  Receive Date: 20050708
  Receipt Date: 20050628
  Transmission Date: 20060218
  Serious: Yes (Other)
  Sender: FDA-Public Use
  Company Number: 2005093194

PATIENT
  Age: 15 Year
  Sex: Male
  Weight: 63.5036 kg

DRUGS (1)
  1. DRAMAMINE [Suspect]
     Indication: EUPHORIC MOOD
     Dosage: 2 BOTTLES ONCE, ORAL
     Route: 048
     Dates: start: 20050628, end: 20050628

REACTIONS (3)
  - ABNORMAL BEHAVIOUR [None]
  - INTENTIONAL MISUSE [None]
  - OVERDOSE [None]
